FAERS Safety Report 17263069 (Version 1)
Quarter: 2020Q1

REPORT INFORMATION
  Report Type: Spontaneous
  Country: BE (occurrence: BE)
  Receive Date: 20200113
  Receipt Date: 20200113
  Transmission Date: 20200409
  Serious: Yes (Hospitalization)
  Sender: FDA-Public Use
  Company Number: BE-MYLANLABS-2020M1003433

PATIENT
  Age: 46 Year
  Sex: Female

DRUGS (4)
  1. MITOMYCIN C [Suspect]
     Active Substance: MITOMYCIN
     Indication: METASTASES TO PERITONEUM
     Dosage: UNK
     Route: 065
  2. LEUCOVORIN CALCIUM. [Suspect]
     Active Substance: LEUCOVORIN CALCIUM
     Indication: METASTASES TO PERITONEUM
     Dosage: 32 MG, UNK
     Route: 065
  3. FLUOROURACIL. [Suspect]
     Active Substance: FLUOROURACIL
     Indication: METASTASES TO PERITONEUM
     Dosage: 1280 MG, UNK
     Route: 065
  4. DOXORUBICIN [Suspect]
     Active Substance: DOXORUBICIN
     Indication: METASTASES TO PERITONEUM
     Dosage: 24 MG, UNK
     Route: 033

REACTIONS (5)
  - Small intestinal perforation [Unknown]
  - Internal hernia [Unknown]
  - Encapsulating peritoneal sclerosis [Recovered/Resolved]
  - Intestinal obstruction [Unknown]
  - Intestinal ischaemia [Unknown]
